FAERS Safety Report 23422901 (Version 1)
Quarter: 2024Q1

REPORT INFORMATION
  Report Type: Spontaneous
  Country: US (occurrence: US)
  Receive Date: 20240119
  Receipt Date: 20240119
  Transmission Date: 20240410
  Serious: No
  Sender: FDA-Public Use
  Company Number: US-SA-SAC20240112001379

PATIENT
  Sex: Female
  Weight: 72.5 kg

DRUGS (8)
  1. DUPIXENT [Suspect]
     Active Substance: DUPILUMAB
     Indication: Neurodermatitis
     Dosage: 300 MG, QOW
     Route: 058
     Dates: start: 202011
  2. AZSTARYS [Concomitant]
     Active Substance: DEXMETHYLPHENIDATE HYDROCHLORIDE\SERDEXMETHYLPHENIDATE CHLORIDE
  3. ADBRY [Concomitant]
     Active Substance: TRALOKINUMAB-LDRM
  4. MELOXICAM [Concomitant]
     Active Substance: MELOXICAM
  5. TRINTELLIX [Concomitant]
     Active Substance: VORTIOXETINE HYDROBROMIDE
  6. TYPHIM VI [Concomitant]
     Active Substance: SALMONELLA TYPHI TY2 VI POLYSACCHARIDE ANTIGEN
  7. HEPLISAV B [Concomitant]
  8. PROTOPIC [Concomitant]
     Active Substance: TACROLIMUS

REACTIONS (9)
  - Immune system disorder [Unknown]
  - Nasal congestion [Unknown]
  - Cough [Unknown]
  - Nasopharyngitis [Unknown]
  - Eczema [Unknown]
  - Skin fissures [Unknown]
  - Skin exfoliation [Unknown]
  - Rash [Unknown]
  - Pruritus [Unknown]

NARRATIVE: CASE EVENT DATE: 20220101
